FAERS Safety Report 10532682 (Version 4)
Quarter: 2015Q1

REPORT INFORMATION
  Report Type: Spontaneous
  Country: JP (occurrence: JP)
  Receive Date: 20141021
  Receipt Date: 20150320
  Transmission Date: 20150720
  Serious: Yes (Death, Hospitalization)
  Sender: FDA-Public Use
  Company Number: JP-ROCHE-1477663

PATIENT
  Age: 64 Year
  Sex: Male
  Weight: 58 kg

DRUGS (10)
  1. TAXOTERE [Suspect]
     Active Substance: DOCETAXEL
     Dosage: COMPLETED TREATMENT CYCLE NUMBER:4
     Route: 041
     Dates: start: 20140606, end: 20140822
  2. PIRFENIDONE [Concomitant]
     Active Substance: PIRFENIDONE
     Indication: IDIOPATHIC PULMONARY FIBROSIS
     Dosage: DRUG REPORTED AS PIRESPA
     Route: 048
     Dates: start: 20120927
  3. CODEINE PHOSPHATE [Concomitant]
     Active Substance: CODEINE PHOSPHATE
     Indication: IDIOPATHIC PULMONARY FIBROSIS
     Route: 048
     Dates: start: 20120927
  4. ABILIT [Concomitant]
     Active Substance: SULPIRIDE
     Indication: GASTRITIS
     Route: 048
     Dates: start: 20130221
  5. AVASTIN [Suspect]
     Active Substance: BEVACIZUMAB
     Indication: LUNG ADENOCARCINOMA
     Dosage: 2 ND COMPLETED TREATMENT CYCLE NUMBER: 4
     Route: 041
     Dates: start: 20140606, end: 20140822
  6. LIDOCAINE. [Concomitant]
     Active Substance: LIDOCAINE
     Indication: STOMATITIS
     Dosage: DOSAGE IS UNCERTAIN.
     Route: 049
     Dates: start: 20140627
  7. TAXOTERE [Suspect]
     Active Substance: DOCETAXEL
     Indication: LUNG ADENOCARCINOMA
     Dosage: DOSAGE UNCERTAIN.
     Route: 041
     Dates: start: 20140904, end: 2014
  8. AZULENE [Concomitant]
     Active Substance: AZULENE
     Indication: STOMATITIS
     Dosage: DOSAGE UNCERTAIN.
     Route: 048
     Dates: start: 20140627
  9. AVASTIN [Suspect]
     Active Substance: BEVACIZUMAB
     Route: 041
     Dates: start: 20140904, end: 2014
  10. PARIET [Concomitant]
     Active Substance: RABEPRAZOLE SODIUM
     Indication: GASTROOESOPHAGEAL REFLUX DISEASE
     Route: 048
     Dates: start: 20120927

REACTIONS (2)
  - Lung adenocarcinoma [Fatal]
  - Lung disorder [Recovering/Resolving]

NARRATIVE: CASE EVENT DATE: 20140912
